FAERS Safety Report 8402782-0 (Version None)
Quarter: 2012Q2

REPORT INFORMATION
  Report Type: 
  Country: None (occurrence: None)
  Receive Date: 20120601
  Receipt Date: 20120521
  Transmission Date: 20120825
  Serious: Yes (Hospitalization)
  Sender: FDA-Public Use
  Company Number: KR-TEVA-340241ISR

PATIENT
  Sex: Female

DRUGS (6)
  1. ABATACEPT [Suspect]
     Indication: RHEUMATOID ARTHRITIS
     Route: 042
     Dates: start: 20070911, end: 20100128
  2. FOLIC ACID [Concomitant]
     Dates: start: 20060426
  3. FAMOTIDINE [Concomitant]
     Dates: start: 20080226
  4. TRIAMCINOLONE [Concomitant]
     Dates: start: 20090521
  5. METHOTREXATE [Suspect]
     Indication: RHEUMATOID ARTHRITIS
     Dates: start: 20061017
  6. HYDROCHLOROTHIAZIDE [Concomitant]
     Dates: start: 20070329

REACTIONS (1)
  - THYROID CANCER [None]
